FAERS Safety Report 9960928 (Version 1)
Quarter: 2014Q1

REPORT INFORMATION
  Report Type: Report from Study
  Country: US (occurrence: US)
  Receive Date: 20140305
  Receipt Date: 20140305
  Transmission Date: 20141002
  Serious: No
  Sender: FDA-Public Use
  Company Number: US-ABBVIE-13P-163-1109660-00

PATIENT
  Age: 50 Year
  Sex: Female

DRUGS (6)
  1. HUMIRA [Suspect]
     Indication: CROHN^S DISEASE
     Dates: start: 20130423
  2. LOSARTAN [Concomitant]
     Indication: HYPERTENSION
  3. TRAMADOL [Concomitant]
     Indication: PAIN
  4. TRAMADOL [Concomitant]
     Indication: MUSCLE RELAXANT THERAPY
  5. AZATHIOPRINE [Concomitant]
     Indication: CROHN^S DISEASE
  6. VITAMIN B12 [Concomitant]
     Indication: VITAMIN SUPPLEMENTATION

REACTIONS (1)
  - Arthralgia [Not Recovered/Not Resolved]
